FAERS Safety Report 25074234 (Version 4)
Quarter: 2025Q4

REPORT INFORMATION
  Report Type: Spontaneous
  Country: US (occurrence: US)
  Receive Date: 20250313
  Receipt Date: 20251001
  Transmission Date: 20260118
  Serious: Yes (Hospitalization, Other)
  Sender: FRESENIUS KABI
  Company Number: US-FreseniusKabi-FK202503732

PATIENT
  Age: 80 Year
  Sex: Male
  Weight: 71.8 kg

DRUGS (7)
  1. CARBOPLATIN [Suspect]
     Active Substance: CARBOPLATIN
     Indication: Non-small cell lung cancer
     Dosage: INJECTION?CONCENTRATE FOR SOLUTION FOR INFUSION?AUC 5?PRIOR TO THE ONSET OF SAE, THE LAST DOSE OF PE
     Route: 042
     Dates: start: 20250220
  2. PEMETREXED DISODIUM [Suspect]
     Active Substance: PEMETREXED DISODIUM
     Indication: Non-small cell lung cancer
     Dosage: INJECTION?POWDER, LYOPHILIZED, FOR SOLUTION FOR INTRAVENOUS USE?PRIOR TO THE ONSET OF SAE, THE LAST
     Route: 042
     Dates: start: 20250220
  3. METFORMIN HYDROCHLORIDE [Concomitant]
     Active Substance: METFORMIN HYDROCHLORIDE
     Indication: Diabetes mellitus
     Route: 048
     Dates: start: 20200115
  4. XARELTO [Concomitant]
     Active Substance: RIVAROXABAN
     Indication: Cerebrovascular accident
     Route: 048
     Dates: start: 20200115
  5. METOPROLOL [Concomitant]
     Active Substance: METOPROLOL
     Indication: Heart rate irregular
     Route: 048
     Dates: start: 20200115
  6. Prinzide (Hydrochlorothiazide, Lisinopril dihydrate) [Concomitant]
     Indication: Hypertension
     Dosage: 20-25 MG
     Route: 048
     Dates: start: 20231023
  7. ZOFRAN [Concomitant]
     Active Substance: ONDANSETRON HYDROCHLORIDE
     Indication: Nausea
     Dosage: AS NEEDED (PRN)
     Route: 048
     Dates: start: 20250220

REACTIONS (3)
  - Pneumonia [Recovering/Resolving]
  - Influenza [Recovering/Resolving]
  - Off label use [Unknown]

NARRATIVE: CASE EVENT DATE: 20250224
